FAERS Safety Report 5003702-1 (Version None)
Quarter: 2006Q2

REPORT INFORMATION
  Report Type: 
  Country: None (occurrence: None)
  Receive Date: 20060516
  Receipt Date: 20060216
  Transmission Date: 20061013
  Serious: Yes (Hospitalization, Disabling)
  Sender: FDA-Public Use
  Company Number: US-MERCK-0602USA04636

PATIENT
  Age: 64 Year
  Sex: Male
  Weight: 88 kg

DRUGS (4)
  1. VIOXX [Suspect]
     Indication: PAIN
     Route: 048
     Dates: start: 20010131, end: 20010213
  2. VIOXX [Suspect]
     Route: 048
     Dates: start: 20000801, end: 20010131
  3. VIOXX [Suspect]
     Indication: ANKYLOSING SPONDYLITIS
     Route: 048
     Dates: start: 20010131, end: 20010213
  4. VIOXX [Suspect]
     Route: 048
     Dates: start: 20000801, end: 20010131

REACTIONS (2)
  - GOUT [None]
  - MYOCARDIAL INFARCTION [None]
